FAERS Safety Report 4924401-8 (Version None)
Quarter: 2006Q1

REPORT INFORMATION
  Report Type: 
  Country: None (occurrence: None)
  Receive Date: 20060221
  Receipt Date: 20060207
  Transmission Date: 20060701
  Serious: Yes (Other)
  Sender: FDA-Public Use
  Company Number: 2005081311

PATIENT
  Age: 51 Year
  Sex: Male
  Weight: 83.0083 kg

DRUGS (7)
  1. LIPITOR [Suspect]
     Indication: HYPERLIPIDAEMIA
     Dosage: 40 MG (1 IN 1 D)
     Dates: start: 20041214, end: 20050308
  2. ZOSTRIX (CAPSAICIN) [Concomitant]
  3. ASPIRIN 10GR TIMED DISINTEGRATION TAB [Concomitant]
  4. EXTRA STRENGTH TYLENOL [Concomitant]
  5. CLARINEX [Concomitant]
  6. LORATADINE [Concomitant]
  7. TRAMADOL HCL [Concomitant]

REACTIONS (13)
  - BEDRIDDEN [None]
  - FLUID INTAKE REDUCED [None]
  - HEPATIC FAILURE [None]
  - HYPERSENSITIVITY [None]
  - HYPERTENSION [None]
  - MUSCLE DISORDER [None]
  - ORAL INTAKE REDUCED [None]
  - OSTEOARTHRITIS [None]
  - PAIN [None]
  - RESPIRATORY RATE INCREASED [None]
  - RHINITIS ALLERGIC [None]
  - VEIN DISORDER [None]
  - WEIGHT DECREASED [None]
